FAERS Safety Report 21351971 (Version 9)
Quarter: 2023Q4

REPORT INFORMATION
  Report Type: Spontaneous
  Country: ES (occurrence: ES)
  Receive Date: 20220920
  Receipt Date: 20231017
  Transmission Date: 20240110
  Serious: Yes (Death, Other)
  Sender: FDA-Public Use
  Company Number: None

PATIENT
  Age: 39 Year
  Sex: Male

DRUGS (11)
  1. DEXAMETHASONE SODIUM PHOSPHATE [Suspect]
     Active Substance: DEXAMETHASONE SODIUM PHOSPHATE
     Indication: COVID-19
     Dosage: DOSE DESCRIPTION : 6 MG, QD
     Route: 042
     Dates: start: 20220818, end: 20220819
  2. DEXAMETHASONE SODIUM PHOSPHATE [Suspect]
     Active Substance: DEXAMETHASONE SODIUM PHOSPHATE
     Indication: COVID-19
  3. LINEZOLID [Suspect]
     Active Substance: LINEZOLID
     Indication: Pneumonia
     Dosage: DOSE DESCRIPTION : 600 MG, CADA 12
     Route: 042
     Dates: start: 20220818, end: 20220819
  4. MEROPENEM [Suspect]
     Active Substance: MEROPENEM
     Indication: Pneumonia
     Dosage: 1 G, Q8H
     Route: 042
     Dates: start: 20220818
  5. ENOXAPARIN SODIUM [Suspect]
     Active Substance: ENOXAPARIN SODIUM
     Indication: Thrombosis prophylaxis
     Dosage: 1 CADA 24H
     Route: 058
     Dates: start: 20220818
  6. ACETAMINOPHEN [Suspect]
     Active Substance: ACETAMINOPHEN
     Indication: Pyrexia
     Dosage: UNK
     Route: 042
     Dates: start: 20220818, end: 20220819
  7. TOCILIZUMAB [Suspect]
     Active Substance: TOCILIZUMAB
     Indication: COVID-19
     Dosage: DOSE DESCRIPTION : 600 MG, 1X
     Route: 042
     Dates: start: 20220818, end: 20220818
  8. TOCILIZUMAB [Suspect]
     Active Substance: TOCILIZUMAB
     Indication: COVID-19
  9. TECLISTAMAB [Suspect]
     Active Substance: TECLISTAMAB
     Indication: Plasma cell myeloma refractory
     Dosage: DOSE DESCRIPTION : UNK
     Route: 065
     Dates: start: 20220624, end: 20220812
  10. TECLISTAMAB [Suspect]
     Active Substance: TECLISTAMAB
     Dosage: 600 MG, QD
     Route: 065
     Dates: start: 20220818, end: 20220818
  11. ENOXAPARIN [Suspect]
     Active Substance: ENOXAPARIN
     Indication: Prophylaxis
     Dosage: 1 EVERY 24H
     Route: 058
     Dates: start: 20220818

REACTIONS (2)
  - Hepatitis acute [Fatal]
  - Hepatitis fulminant [Fatal]

NARRATIVE: CASE EVENT DATE: 20220820
